FAERS Safety Report 19238651 (Version 1)
Quarter: 2021Q2

REPORT INFORMATION
  Report Type: Spontaneous
  Country: US (occurrence: US)
  Receive Date: 20210510
  Receipt Date: 20210510
  Transmission Date: 20210717
  Serious: No
  Sender: FDA-Public Use
  Company Number: US-PFIZER INC-2021154124

PATIENT
  Age: 10 Year
  Sex: Female
  Weight: 20 kg

DRUGS (15)
  1. VITAMIN D3 K2 [Concomitant]
     Dosage: 1 DROP
  2. COENZYME Q10 [Concomitant]
     Active Substance: DIETARY SUPPLEMENT\UBIDECARENONE
     Dosage: UNK
  3. MAGNESIUM L?THREONATE [Concomitant]
     Dosage: 250 MG, DAILY (1 HOUR BEFORE LUNCH 1 CAPSULE)
  4. DILANTIN [Suspect]
     Active Substance: PHENYTOIN
     Dosage: 150 MG, DAILY (IN 3 DIVIDED DOSES)
  5. DILANTIN [Suspect]
     Active Substance: PHENYTOIN
     Dosage: 150 MG, DAILY (2 CAPSULES OF 30MG 2X A DAY AND 1 CAPSULE OF 30 MG)
     Dates: start: 20210209
  6. B COMPLEX [AMINOBENZOIC ACID;BIOTIN;CHOLINE BITARTRATE;FOLIC ACID;INOS [Concomitant]
     Dosage: 2.5 ML
  7. CARNITINE [LEVOCARNITINE TARTRATE] [Concomitant]
     Dosage: UNK (2 SCOPPS WITH MORNING MEAL)
  8. DILANTIN [Suspect]
     Active Substance: PHENYTOIN
     Indication: STATUS EPILEPTICUS
     Dosage: 60 MG, 2X/DAY (2 CAPSULES OF 30 MG TWICE A DAY)
     Dates: start: 20210131
  9. DILANTIN [Suspect]
     Active Substance: PHENYTOIN
     Dosage: UNK
  10. 5?METHYLTETRAHYDROFOLATE [Concomitant]
     Active Substance: LEVOMEFOLIC ACID
     Dosage: 13 DROP
  11. DILANTIN [Suspect]
     Active Substance: PHENYTOIN
     Dosage: 150 MG, DAILY (2 CAPSULES OF 30MG 2X A DAY AND 1 CAPSULE OF 30 MG)
     Dates: start: 20210201
  12. BENFOTIAMINE [Concomitant]
     Active Substance: BENFOTIAMINE
     Dosage: 150 MG (EVERY FOUR DAY)
  13. MAGNESIUM L?THREONATE [Concomitant]
     Dosage: 500 MG
  14. PQQ [Concomitant]
     Dosage: UNK (20 MG ? 30 VEGGIE CAPS)
  15. METABOLIC MINERAL MIXTURE [Concomitant]
     Dosage: UNK

REACTIONS (4)
  - Somnolence [Unknown]
  - Poor quality product administered [Unknown]
  - Product colour issue [Unknown]
  - Drug level decreased [Unknown]

NARRATIVE: CASE EVENT DATE: 20210209
